FAERS Safety Report 9562684 (Version 2)
Quarter: 2013Q4

REPORT INFORMATION
  Report Type: Spontaneous
  Country: US (occurrence: US)
  Receive Date: 20130927
  Receipt Date: 20131018
  Transmission Date: 20140711
  Serious: No
  Sender: FDA-Public Use
  Company Number: US-PFIZER INC-2013277297

PATIENT
  Age: 70 Year
  Sex: Male
  Weight: 88.44 kg

DRUGS (4)
  1. LYRICA [Suspect]
     Indication: NEURALGIA
     Dosage: 50 MG, 3X/DAY
     Route: 048
     Dates: start: 201308, end: 2013
  2. LYRICA [Suspect]
     Dosage: 100 MG, 3X/DAY
     Route: 048
     Dates: start: 2013
  3. GABAPENTIN [Concomitant]
     Indication: NEURALGIA
     Dosage: UNK
     Route: 048
  4. GABAPENTIN [Concomitant]
     Dosage: 900 MG (BY TAKING 3 CAPSULES OF 300MG), 4X/DAY
     Route: 048

REACTIONS (1)
  - Drug ineffective [Unknown]
